FAERS Safety Report 5602205-0 (Version None)
Quarter: 2008Q1

REPORT INFORMATION
  Report Type: 
  Country: None (occurrence: None)
  Receive Date: 20080125
  Receipt Date: 20080116
  Transmission Date: 20080703
  Serious: Yes (Life-Threatening, Hospitalization)
  Sender: FDA-Public Use
  Company Number: DE-NOVOPROD-268727

PATIENT
  Sex: Male
  Weight: 44.6 kg

DRUGS (8)
  1. NORDITROPIN NORDIFLEX [Suspect]
     Indication: SHORT-BOWEL SYNDROME
     Dosage: 1.2 MG, QD
     Route: 058
     Dates: start: 20051209, end: 20070501
  2. PANZYTRAT [Concomitant]
     Indication: DRUG USE FOR UNKNOWN INDICATION
     Dosage: 40 - 80.000 IE BEFORE MEALTIMES.
  3. VITAMIN K                          /00032401/ [Concomitant]
     Indication: DRUG USE FOR UNKNOWN INDICATION
     Dosage: 15 GTT, QD
     Route: 048
  4. VITAMIN E                          /00110501/ [Concomitant]
     Indication: DRUG USE FOR UNKNOWN INDICATION
     Dosage: 2000 IE, QD
  5. SELEN [Concomitant]
     Indication: DRUG USE FOR UNKNOWN INDICATION
     Dosage: 1 TAB, QD
     Route: 048
  6. ZINK                               /00156502/ [Concomitant]
     Indication: DRUG USE FOR UNKNOWN INDICATION
     Dosage: 1 TAB, QD
     Route: 048
  7. SUPRADYN                           /00453001/ [Concomitant]
     Indication: DRUG USE FOR UNKNOWN INDICATION
     Dosage: 1 TAB, QD
     Route: 048
  8. IMODIUM                            /00384302/ [Concomitant]
     Indication: DRUG USE FOR UNKNOWN INDICATION
     Route: 048

REACTIONS (3)
  - ARTHRALGIA [None]
  - HYPOPHOSPHATAEMIA [None]
  - MYALGIA [None]
